FAERS Safety Report 22270239 (Version 1)
Quarter: 2023Q2

REPORT INFORMATION
  Report Type: Spontaneous
  Country: US (occurrence: None)
  Receive Date: 20230428
  Receipt Date: 20230428
  Transmission Date: 20230722
  Serious: No
  Sender: FDA-Public Use
  Company Number: None

PATIENT
  Age: 50 Year
  Sex: Female
  Weight: 50.4 kg

DRUGS (1)
  1. GLATIRAMER [Suspect]
     Active Substance: GLATIRAMER
     Indication: Multiple sclerosis
     Dosage: OTHER FREQUENCY : 3 TIMES A WEEK;?
     Route: 058
     Dates: start: 20201223

REACTIONS (2)
  - Injection site haemorrhage [None]
  - Injection site papule [None]

NARRATIVE: CASE EVENT DATE: 20201223
